FAERS Safety Report 25594421 (Version 1)
Quarter: 2025Q3

REPORT INFORMATION
  Report Type: Report from Study
  Country: US (occurrence: US)
  Receive Date: 20250723
  Receipt Date: 20250723
  Transmission Date: 20251020
  Serious: Yes (Death, Other)
  Sender: ABBVIE
  Company Number: US-JNJFOC-20250715359

PATIENT

DRUGS (1)
  1. IBRUTINIB [Suspect]
     Active Substance: IBRUTINIB
     Indication: Chronic lymphocytic leukaemia
     Route: 048

REACTIONS (5)
  - Gastrointestinal haemorrhage [Fatal]
  - Cerebrovascular accident [Unknown]
  - Haemorrhage intracranial [Fatal]
  - Transient ischaemic attack [Unknown]
  - Embolism venous [Unknown]
